FAERS Safety Report 13320510 (Version 5)
Quarter: 2018Q3

REPORT INFORMATION
  Report Type: Spontaneous
  Country: GB (occurrence: GB)
  Receive Date: 20170309
  Receipt Date: 20180709
  Transmission Date: 20181010
  Serious: Yes (Other)
  Sender: FDA-Public Use
  Company Number: GB-CONCORDIA PHARMACEUTICALS INC.-E2B_00008061

PATIENT
  Age: 31 Year
  Sex: Male

DRUGS (8)
  1. PREDNISOLONE. [Suspect]
     Active Substance: PREDNISOLONE
     Indication: PULMONARY RENAL SYNDROME
     Dosage: 5 G, QD
     Route: 048
  2. PREDNISOLONE. [Suspect]
     Active Substance: PREDNISOLONE
     Indication: IGA NEPHROPATHY
     Route: 048
  3. CYCLOPHOSPHAMIDE. [Suspect]
     Active Substance: CYCLOPHOSPHAMIDE
     Indication: PULMONARY RENAL SYNDROME
     Route: 042
  4. METHYLPREDNISOLONE. [Suspect]
     Active Substance: METHYLPREDNISOLONE
     Indication: IGA NEPHROPATHY
  5. CYCLOPHOSPHAMIDE. [Suspect]
     Active Substance: CYCLOPHOSPHAMIDE
     Indication: IGA NEPHROPATHY
     Dosage: 2 FURTHER DOSES OF (MONTH 2; 3)
     Route: 042
  6. MYCOPHENOLATE MOFETIL. [Suspect]
     Active Substance: MYCOPHENOLATE MOFETIL
     Indication: PULMONARY RENAL SYNDROME
  7. RITUXIMAB. [Suspect]
     Active Substance: RITUXIMAB
     Indication: PULMONARY RENAL SYNDROME
     Dosage: 2 DOSES (MONTH 4; 5 POST?PRESENTATION)
  8. METHYLPREDNISOLONE. [Suspect]
     Active Substance: METHYLPREDNISOLONE
     Indication: PULMONARY RENAL SYNDROME
     Dosage: 2 FURTHER DOSES OF (MONTH 2; 3)
     Route: 042

REACTIONS (1)
  - Neutropenia [Recovered/Resolved]
